FAERS Safety Report 9386488 (Version 1)
Quarter: 2013Q3

REPORT INFORMATION
  Report Type: Spontaneous
  Country: US (occurrence: US)
  Receive Date: 20130708
  Receipt Date: 20130708
  Transmission Date: 20140515
  Serious: No
  Sender: FDA-Public Use
  Company Number: US-BIOGENIDEC-2013BI060420

PATIENT
  Sex: Female

DRUGS (2)
  1. AVONEX [Suspect]
     Indication: MULTIPLE SCLEROSIS
     Route: 030
     Dates: start: 19960501, end: 20060101
  2. AVONEX [Suspect]
     Indication: MULTIPLE SCLEROSIS
     Route: 030
     Dates: start: 20121207

REACTIONS (2)
  - Lower extremity mass [Recovered/Resolved with Sequelae]
  - Malaise [Recovered/Resolved with Sequelae]
